FAERS Safety Report 8818209 (Version 2)
Quarter: 2013Q1

REPORT INFORMATION
  Report Type: Spontaneous
  Country: US (occurrence: US)
  Receive Date: 20121001
  Receipt Date: 20130326
  Transmission Date: 20140127
  Serious: Yes (Hospitalization, Disabling, Other)
  Sender: FDA-Public Use
  Company Number: US-PFIZER INC-2012240214

PATIENT
  Age: 48 Year
  Sex: Female

DRUGS (3)
  1. CHANTIX [Suspect]
     Indication: SMOKING CESSATION THERAPY
     Dosage: STARTER PACK (PER PACKAGE DIRECTIONS)
     Dates: start: 20071016, end: 20071115
  2. CHANTIX [Suspect]
     Dosage: UNK
     Dates: start: 20080918, end: 20081009
  3. SIMVASTATIN [Concomitant]
     Indication: BLOOD CHOLESTEROL INCREASED
     Dosage: UNK
     Dates: start: 2005

REACTIONS (9)
  - Suicide attempt [Recovered/Resolved]
  - Major depression [Recovered/Resolved]
  - Abnormal behaviour [Unknown]
  - Mood altered [Unknown]
  - Agitation [Unknown]
  - Abnormal dreams [Unknown]
  - Mood swings [Recovered/Resolved]
  - Aggression [Recovered/Resolved]
  - Thinking abnormal [Recovered/Resolved]
